FAERS Safety Report 15854547 (Version 1)
Quarter: 2019Q1

REPORT INFORMATION
  Report Type: Spontaneous
  Country: US (occurrence: US)
  Receive Date: 20190122
  Receipt Date: 20190122
  Transmission Date: 20190417
  Serious: No
  Sender: FDA-Public Use
  Company Number: None

PATIENT
  Age: 82 Year
  Sex: Female
  Weight: 101.16 kg

DRUGS (14)
  1. ALPRAZOLAM. [Concomitant]
     Active Substance: ALPRAZOLAM
  2. ONDANSETRON [Concomitant]
     Active Substance: ONDANSETRON
  3. VITAMIN D3 [Concomitant]
     Active Substance: CHOLECALCIFEROL
  4. DRONABINOL. [Concomitant]
     Active Substance: DRONABINOL
  5. METOPROLOL. [Concomitant]
     Active Substance: METOPROLOL
  6. PROTONIX [Concomitant]
     Active Substance: PANTOPRAZOLE SODIUM
  7. VERZENIO [Suspect]
     Active Substance: ABEMACICLIB
     Indication: METASTASES TO BONE
     Route: 048
     Dates: start: 20181113, end: 20190122
  8. XGEVA [Concomitant]
     Active Substance: DENOSUMAB
  9. LIDOCAINE-PRILOCAINE [Concomitant]
     Active Substance: LIDOCAINE\PRILOCAINE
  10. SERTRALINE [Concomitant]
     Active Substance: SERTRALINE HYDROCHLORIDE
  11. TURMERIC [Concomitant]
     Active Substance: HERBALS\TURMERIC
  12. VITAMIN B COMPLEX [Concomitant]
     Active Substance: CYANOCOBALAMIN\DEXPANTHENOL\NIACINAMIDE\PYRIDOXINE HYDROCHLORIDE\RIBOFLAVIN 5^-PHOSPHATE SODIUM\THIAMINE HYDROCHLORIDE\VITAMIN B COMPLEX
  13. VERZENIO [Suspect]
     Active Substance: ABEMACICLIB
     Indication: BREAST CANCER
     Route: 048
     Dates: start: 20181113, end: 20190122
  14. BUPROPION. [Concomitant]
     Active Substance: BUPROPION

REACTIONS (2)
  - Abdominal pain upper [None]
  - Diarrhoea [None]
